FAERS Safety Report 9525269 (Version 1)
Quarter: 2013Q1

REPORT INFORMATION
  Report Type: Spontaneous
  Country: US (occurrence: None)
  Receive Date: 20130313
  Receipt Date: 20130313
  Transmission Date: 20140127
  Serious: No
  Sender: FDA-Public Use
  Company Number: 1000028869

PATIENT
  Age: 60 Year
  Sex: Female

DRUGS (7)
  1. SAVELLA [Suspect]
     Indication: FIBROMYALGIA
     Dosage: 12.5 MG (12.5 MG, 1 IN 1 D), ORAL
     Route: 048
     Dates: start: 20120301, end: 20120301
  2. SAVELLA [Suspect]
     Indication: FIBROMYALGIA
     Dosage: 50 MG (25 MG, 2 IN 1 D), ORAL
     Route: 048
     Dates: start: 20120304, end: 20120304
  3. ULTRACET (TRAMADOL) (TRAMADOL) [Concomitant]
  4. VITAMIN D (VITAMIN D) (VITAMIN D) [Concomitant]
  5. LEVOXYL (LEVOTHYROXINE SODIUM) (LEVOTHYROXINE SODIUM) [Concomitant]
  6. CHLORTHALIDONE (CHLORTALIDONE) (CHLORTALIDONE) [Concomitant]
  7. BLUEBERRY EXTRACT (BLUEBERRY EXTRACT) (BLUEBERRY EXTRACT) [Concomitant]

REACTIONS (5)
  - Palpitations [None]
  - Nervousness [None]
  - Psychomotor hyperactivity [None]
  - Abnormal dreams [None]
  - Somnolence [None]
